FAERS Safety Report 17920120 (Version 1)
Quarter: 2020Q2

REPORT INFORMATION
  Report Type: Spontaneous
  Country: PL (occurrence: PL)
  Receive Date: 20200620
  Receipt Date: 20200620
  Transmission Date: 20200714
  Serious: Yes (Other)
  Sender: FDA-Public Use
  Company Number: PL-ACCORD-186212

PATIENT
  Age: 45 Year
  Sex: Male
  Weight: 66 kg

DRUGS (2)
  1. FLUOROURACIL MEDAC [Suspect]
     Active Substance: FLUOROURACIL
     Indication: RECTAL CANCER
     Dosage: 5000 MG VIAL
     Route: 042
     Dates: start: 20191211, end: 20191213
  2. IRINOTECAN  ACCORD [Suspect]
     Active Substance: IRINOTECAN
     Indication: RECTAL CANCER
     Dosage: 100 MG VIAL
     Route: 042
     Dates: start: 20191211, end: 20191211

REACTIONS (2)
  - Hepatotoxicity [Recovering/Resolving]
  - Asthenia [Recovering/Resolving]

NARRATIVE: CASE EVENT DATE: 20191230
